FAERS Safety Report 4902429-1 (Version None)
Quarter: 2006Q1

REPORT INFORMATION
  Report Type: 
  Country: None (occurrence: None)
  Receive Date: 20060202
  Receipt Date: 20060118
  Transmission Date: 20060701
  Serious: Yes (Hospitalization)
  Sender: FDA-Public Use
  Company Number: 217980

PATIENT
  Age: 68 Year
  Sex: Male
  Weight: 95.6 kg

DRUGS (6)
  1. AVASTIN [Suspect]
     Indication: COLON CANCER
     Dosage: 476 MG, Q2W, INTRAVENOUS
     Route: 042
     Dates: start: 20050509
  2. FLUOROURACIL [Suspect]
     Indication: COLON CANCER
     Dosage: SEE IMAGE
     Route: 042
     Dates: start: 20050509
  3. OXALIPLATIN (OXALIPLATIN) [Suspect]
     Indication: COLON CANCER
     Dosage: 120 MG, Q2W, INTRAVENOUS
     Route: 042
     Dates: start: 20050509, end: 20050620
  4. LEUCOVORIN CALCIUM [Suspect]
     Indication: COLON CANCER
     Dosage: 956 MG, Q2W, INTRAVENOUS
     Route: 042
     Dates: start: 20050509
  5. WARFARIN SODIUM [Concomitant]
  6. LANSOPRAZOLE [Concomitant]

REACTIONS (1)
  - APPENDICITIS [None]
